FAERS Safety Report 7900118-2 (Version None)
Quarter: 2011Q4

REPORT INFORMATION
  Report Type: 
  Country: None (occurrence: None)
  Receive Date: 20111108
  Receipt Date: 20111029
  Transmission Date: 20120403
  Serious: No
  Sender: FDA-Public Use
  Company Number: US-BIOGENIDEC-2011BI023527

PATIENT
  Sex: Female

DRUGS (3)
  1. GABAPENTIN [Concomitant]
  2. TYSABRI [Suspect]
     Indication: MULTIPLE SCLEROSIS
     Route: 042
     Dates: start: 20110620
  3. BACLOFEN [Concomitant]

REACTIONS (6)
  - ABDOMINAL DISCOMFORT [None]
  - NAUSEA [None]
  - INFLUENZA [None]
  - STRESS [None]
  - HEADACHE [None]
  - FATIGUE [None]
